FAERS Safety Report 23416004 (Version 1)
Quarter: 2024Q1

REPORT INFORMATION
  Report Type: Spontaneous
  Country: EU (occurrence: EU)
  Receive Date: 20240118
  Receipt Date: 20240118
  Transmission Date: 20240410
  Serious: Yes (Hospitalization, Other)
  Sender: FDA-Public Use
  Company Number: EU-SEPTODONT-2023018295

PATIENT

DRUGS (4)
  1. ARTICAINE HYDROCHLORIDE\EPINEPHRINE HYDROCHLORIDE [Suspect]
     Active Substance: ARTICAINE HYDROCHLORIDE\EPINEPHRINE HYDROCHLORIDE
     Indication: Local anaesthesia
     Dosage: 1.6 ML
     Route: 004
  2. METILDIGOXIN [Concomitant]
     Active Substance: METILDIGOXIN
  3. Quinidine,Verapamil [Concomitant]
  4. VERAPAMIL HYDROCHLORIDE [Concomitant]
     Active Substance: VERAPAMIL HYDROCHLORIDE

REACTIONS (6)
  - Impaired driving ability [Unknown]
  - Amnesia [Unknown]
  - Syncope [Unknown]
  - Hypertension [Unknown]
  - Heart rate increased [Unknown]
  - Agitation [Unknown]
